FAERS Safety Report 14167071 (Version 1)
Quarter: 2017Q4

REPORT INFORMATION
  Report Type: Spontaneous
  Country: CN (occurrence: CN)
  Receive Date: 20171107
  Receipt Date: 20171107
  Transmission Date: 20180321
  Serious: Yes (Other)
  Sender: FDA-Public Use
  Company Number: CN-BAYER-2017-213717

PATIENT
  Age: 48 Year
  Sex: Male

DRUGS (1)
  1. NEXAVAR [Suspect]
     Active Substance: SORAFENIB
     Dosage: UNK
     Route: 048
     Dates: start: 20160829

REACTIONS (2)
  - Palmar-plantar erythrodysaesthesia syndrome [None]
  - Transcatheter arterial chemoembolisation [None]

NARRATIVE: CASE EVENT DATE: 20160917
